FAERS Safety Report 5419838-7 (Version None)
Quarter: 2007Q3

REPORT INFORMATION
  Report Type: 
  Country: None (occurrence: None)
  Receive Date: 20070718
  Receipt Date: 20060803
  Transmission Date: 20080115
  Serious: Yes (Hospitalization)
  Sender: FDA-Public Use
  Company Number: 2006101070

PATIENT
  Age: 60 Year
  Sex: Female
  Weight: 77.1115 kg

DRUGS (7)
  1. CELEBREX [Suspect]
     Indication: ARTHRITIS
     Dosage: 200 MG (200 MG, 1 IN 1 D)
     Dates: start: 20020204
  2. ADVIL [Concomitant]
  3. ALEVE [Concomitant]
  4. ASPIRIN [Concomitant]
  5. MORPHINE [Concomitant]
  6. ACETAMINOPHEN [Concomitant]
  7. VIOXX [Concomitant]

REACTIONS (1)
  - MYOCARDIAL INFARCTION [None]
